FAERS Safety Report 15895867 (Version 1)
Quarter: 2019Q1

REPORT INFORMATION
  Report Type: Spontaneous
  Country: US (occurrence: US)
  Receive Date: 20190131
  Receipt Date: 20190131
  Transmission Date: 20190417
  Serious: No
  Sender: FDA-Public Use
  Company Number: US-PFIZER INC-2019037657

PATIENT
  Age: 66 Year
  Sex: Female
  Weight: 85.73 kg

DRUGS (16)
  1. CALCIUM + MAGNESIUM + ZINK [Concomitant]
     Dosage: 1 DF, 1X/DAY (EVERY MORNING)
  2. ACETAMINOPHEN;HYDROCODONE BITARTRATE [Concomitant]
     Indication: PAIN
     Dosage: 1 DF, AS NEEDED ACETAMINOPHEN 325 MG/ HYDROCODONE 5 MG)
  3. IBRANCE [Interacting]
     Active Substance: PALBOCICLIB
     Indication: BONE CANCER
     Dosage: 100 MG, CYCLIC (21 DAYS AND OFF ONE WEEK)
     Dates: start: 201808
  4. GLIMEPIRIDE. [Interacting]
     Active Substance: GLIMEPIRIDE
     Indication: DIABETES MELLITUS
     Dosage: 4 MG, UNK
  5. ANASTROZOL [Concomitant]
     Active Substance: ANASTROZOLE
     Dosage: 1 MG, DAILY (ONE EVERY DAY)
  6. ALENDRONATE [Concomitant]
     Active Substance: ALENDRONATE SODIUM
     Dosage: 70 MG, DAILY (ONE EVERY DAY)
  7. LISINOPRIL. [Concomitant]
     Active Substance: LISINOPRIL
     Indication: BACK PAIN
     Dosage: 10 MG, DAILY (EVERY DAY)
  8. FLUTICANOSE [Concomitant]
     Indication: ROSACEA
     Dosage: UNK UNK, 2X/DAY (RUB ON FACE TWICE A DAY)
     Route: 061
  9. IBRANCE [Suspect]
     Active Substance: PALBOCICLIB
     Indication: BREAST CANCER METASTATIC
     Dosage: 150 MG, 1X/DAY (FOR 21 DAYS)
     Dates: start: 2018
  10. GLIMEPIRIDE. [Interacting]
     Active Substance: GLIMEPIRIDE
     Dosage: 2 MG, UNK
  11. LISINOPRIL. [Concomitant]
     Active Substance: LISINOPRIL
     Indication: HYPERTENSION
     Dosage: 2.5 MG, UNK
  12. IBRANCE [Interacting]
     Active Substance: PALBOCICLIB
     Dosage: 75 MG, CYCLIC (21 DAYS AND OFF ONE WEEK)
  13. DOXYCYCLIN AL [DOXYCYCLINE HYCLATE] [Concomitant]
     Indication: ROSACEA
     Dosage: 100 MG, 2X/DAY (MORNING AND NIGHT)
  14. TRAMADOL. [Concomitant]
     Active Substance: TRAMADOL
     Indication: PAIN
     Dosage: 50 MG, AS NEEDED (DURING DAY)
  15. METFORMIN [Interacting]
     Active Substance: METFORMIN HYDROCHLORIDE
     Indication: DIABETES MELLITUS
     Dosage: 1000 MG, 2X/DAY
  16. CALCIUM 600+D3-SUPPORT BONE HEALTH [Concomitant]
     Indication: OSTEOPOROSIS
     Dosage: 1 DF, 1X/DAY (AT NIGHT)

REACTIONS (9)
  - Hyperhidrosis [Not Recovered/Not Resolved]
  - Decreased appetite [Not Recovered/Not Resolved]
  - Nausea [Recovering/Resolving]
  - Chills [Not Recovered/Not Resolved]
  - Feeling cold [Not Recovered/Not Resolved]
  - Full blood count decreased [Not Recovered/Not Resolved]
  - Drug interaction [Recovering/Resolving]
  - Weight decreased [Not Recovered/Not Resolved]
  - Pain in extremity [Unknown]

NARRATIVE: CASE EVENT DATE: 2018
